FAERS Safety Report 25037021 (Version 4)
Quarter: 2025Q2

REPORT INFORMATION
  Report Type: Spontaneous
  Country: US (occurrence: US)
  Receive Date: 20250304
  Receipt Date: 20250423
  Transmission Date: 20250717
  Serious: No
  Sender: PFIZER
  Company Number: US-PFIZER INC-202500046099

PATIENT
  Age: 13 Year
  Sex: Male
  Weight: 28.12 kg

DRUGS (1)
  1. GENOTROPIN [Suspect]
     Active Substance: SOMATROPIN
     Indication: Growth hormone deficiency
     Dosage: 1 DOSE, HE TAKE IT EVERY NIGHT
     Dates: start: 2023

REACTIONS (3)
  - Device mechanical issue [Unknown]
  - Device issue [Unknown]
  - Drug dose omission by device [Unknown]
